FAERS Safety Report 7372783-2 (Version None)
Quarter: 2011Q1

REPORT INFORMATION
  Report Type: 
  Country: None (occurrence: None)
  Receive Date: 20110324
  Receipt Date: 20110324
  Transmission Date: 20110831
  Serious: No
  Sender: FDA-Public Use
  Company Number: US-B.I. PHARMACEUTICALS,INC./RIDGEFIELD-2011-BP-02302BP

PATIENT
  Sex: Female

DRUGS (5)
  1. PRENDALIN [Concomitant]
     Indication: DIABETES MELLITUS
     Route: 048
  2. VALTURNA [Concomitant]
     Indication: BLOOD PRESSURE INCREASED
     Route: 048
  3. METFORMIN HCL [Concomitant]
     Indication: DIABETES MELLITUS
     Route: 048
  4. HYDRALAZINE HCL [Suspect]
     Indication: BLOOD PRESSURE INCREASED
     Route: 048
  5. CLONIDINE HCL [Suspect]
     Indication: HYPERTENSION
     Dosage: 2 MG
     Route: 048
     Dates: end: 20110112

REACTIONS (4)
  - BLOOD PRESSURE DECREASED [None]
  - PALPITATIONS [None]
  - BLOOD PRESSURE INCREASED [None]
  - DRY EYE [None]
